FAERS Safety Report 23861347 (Version 1)
Quarter: 2024Q2

REPORT INFORMATION
  Report Type: Report from Study
  Country: US (occurrence: US)
  Receive Date: 20240516
  Receipt Date: 20240516
  Transmission Date: 20240716
  Serious: Yes (Hospitalization)
  Sender: FDA-Public Use
  Company Number: US-ABBVIE-5760888

PATIENT
  Age: 68 Year
  Sex: Female

DRUGS (3)
  1. SKYRIZI [Suspect]
     Active Substance: RISANKIZUMAB-RZAA
     Indication: Psoriasis
     Dosage: FORM STRENGTH: 150 MG / ML ?WEEK 0
     Route: 058
     Dates: start: 20231002, end: 20231002
  2. SKYRIZI [Suspect]
     Active Substance: RISANKIZUMAB-RZAA
     Dosage: FORM STRENGTH: 150 MG / ML ?WEEK 4
     Route: 058
     Dates: start: 20231030, end: 20231030
  3. SKYRIZI [Suspect]
     Active Substance: RISANKIZUMAB-RZAA
     Dosage: FORM STRENGTH: 150 MG / ML ?AT WEEK 12
     Route: 058
     Dates: start: 202401

REACTIONS (7)
  - Urinary tract infection [Not Recovered/Not Resolved]
  - Back pain [Recovering/Resolving]
  - Nausea [Recovering/Resolving]
  - Dehydration [Recovering/Resolving]
  - Abdominal pain [Not Recovered/Not Resolved]
  - Vomiting [Recovering/Resolving]
  - Decreased appetite [Not Recovered/Not Resolved]

NARRATIVE: CASE EVENT DATE: 20240501
